FAERS Safety Report 6691354-4 (Version None)
Quarter: 2010Q2

REPORT INFORMATION
  Report Type: 
  Country: None (occurrence: None)
  Receive Date: 20100422
  Receipt Date: 20100412
  Transmission Date: 20101027
  Serious: Yes (Other)
  Sender: FDA-Public Use
  Company Number: US-ASTRAZENECA-2009UW17875

PATIENT
  Age: 16850 Day
  Sex: Female
  Weight: 113.4 kg

DRUGS (8)
  1. SEROQUEL [Suspect]
     Dosage: 400MG-600MG
     Route: 048
     Dates: start: 20041011
  2. LITHIUM CARBONATE [Concomitant]
     Dates: start: 20041206
  3. WELLBUTRIN SR [Concomitant]
     Dates: start: 20030113
  4. EFFEXOR XR [Concomitant]
     Dosage: 75MG-150MG
     Dates: start: 20030113
  5. AMBIEN [Concomitant]
     Indication: INSOMNIA
     Dates: start: 20030113
  6. ZOCOR [Concomitant]
     Dates: start: 20051003
  7. TRAZODONE [Concomitant]
     Dosage: 150MG-300MG
     Dates: start: 20051003
  8. LEXAPRO [Concomitant]
     Dosage: 20MG-40MG
     Dates: start: 20051003

REACTIONS (4)
  - DIABETES MELLITUS [None]
  - NEUROPATHY PERIPHERAL [None]
  - OBESITY [None]
  - WEIGHT INCREASED [None]
